FAERS Safety Report 9028021 (Version 2)
Quarter: 2013Q2

REPORT INFORMATION
  Report Type: Spontaneous
  Country: FR (occurrence: FR)
  Receive Date: 20130123
  Receipt Date: 20130412
  Transmission Date: 20140414
  Serious: Yes (Other)
  Sender: FDA-Public Use
  Company Number: FR-AMGEN-FRASP2013003957

PATIENT
  Sex: Female

DRUGS (1)
  1. NEUPOGEN [Suspect]
     Indication: NEUTROPENIA
     Dosage: UNK UNK, 3 TIMES/WK
     Dates: start: 2000

REACTIONS (5)
  - Pyrexia [Unknown]
  - Delirium [Unknown]
  - Drug specific antibody present [Unknown]
  - Pain [Unknown]
  - Drug tolerance decreased [Unknown]
